FAERS Safety Report 18779079 (Version 1)
Quarter: 2021Q1

REPORT INFORMATION
  Report Type: Spontaneous
  Country: US (occurrence: US)
  Receive Date: 20210125
  Receipt Date: 20210125
  Transmission Date: 20210419
  Serious: Yes (Hospitalization, Other)
  Sender: FDA-Public Use
  Company Number: US-LEADINGPHARMA-US-2021LEALIT00014

PATIENT
  Age: 68 Year
  Sex: Male

DRUGS (5)
  1. OXYBUTYNIN CHLORIDE TABLETS USP [Suspect]
     Active Substance: OXYBUTYNIN CHLORIDE
     Route: 065
  2. DIAZEPAM. [Suspect]
     Active Substance: DIAZEPAM
     Indication: PRODUCT USED FOR UNKNOWN INDICATION
  3. OXYBUTYNIN CHLORIDE TABLETS USP [Suspect]
     Active Substance: OXYBUTYNIN CHLORIDE
     Indication: PRODUCT USED FOR UNKNOWN INDICATION
  4. BACLOFEN. [Suspect]
     Active Substance: BACLOFEN
     Indication: PRODUCT USED FOR UNKNOWN INDICATION
     Route: 065
  5. BACLOFEN. [Suspect]
     Active Substance: BACLOFEN

REACTIONS (2)
  - Medication error [Unknown]
  - Delirium [Recovered/Resolved]
